FAERS Safety Report 14085674 (Version 1)
Quarter: 2017Q4

REPORT INFORMATION
  Report Type: Report from Study
  Country: US (occurrence: US)
  Receive Date: 20171013
  Receipt Date: 20171013
  Transmission Date: 20180321
  Serious: Yes (Life-Threatening, Hospitalization, Other)
  Sender: FDA-Public Use
  Company Number: US-UCBSA-2016013262

PATIENT
  Sex: Male
  Weight: 136 kg

DRUGS (4)
  1. KEPPRA XR [Suspect]
     Active Substance: LEVETIRACETAM
     Dosage: 1500 MG, UNK
  2. KEPPRA XR [Suspect]
     Active Substance: LEVETIRACETAM
     Indication: SEIZURE
     Dosage: 3000 MG DAILY
     Route: 048
     Dates: start: 2009
  3. LACOSAMIDE. [Suspect]
     Active Substance: LACOSAMIDE
     Indication: SEIZURE
     Dosage: 100 MG, 2X/DAY (BID)
     Route: 048
     Dates: start: 2009
  4. SYNTHROID [Concomitant]
     Active Substance: LEVOTHYROXINE SODIUM
     Indication: THYROIDECTOMY
     Dosage: THYROID REMOVED IN 2014OR 2015 BUT WAS NOT ABLE TO GIVE THE DIAGNOSIS

REACTIONS (2)
  - Cerebral haemorrhage [Recovered/Resolved]
  - Thyroid disorder [Unknown]

NARRATIVE: CASE EVENT DATE: 2014
